FAERS Safety Report 24953187 (Version 1)
Quarter: 2025Q1

REPORT INFORMATION
  Report Type: Spontaneous
  Country: FR (occurrence: FR)
  Receive Date: 20250211
  Receipt Date: 20250211
  Transmission Date: 20250409
  Serious: Yes (Hospitalization)
  Sender: JOHNSON AND JOHNSON
  Company Number: None

PATIENT
  Age: 72 Year
  Sex: Female
  Weight: 72 kg

DRUGS (2)
  1. RYBREVANT [Suspect]
     Active Substance: AMIVANTAMAB-VMJW
     Indication: Bronchial carcinoma
     Route: 041
     Dates: start: 20240606, end: 20241128
  2. PEMETREXED ACCORD 25 mg/mL, solution ? diluer pour perfusion [Concomitant]
     Indication: Bronchial carcinoma
     Route: 065
     Dates: start: 20240606, end: 20241219

REACTIONS (3)
  - Paronychia [Not Recovered/Not Resolved]
  - Folliculitis [Not Recovered/Not Resolved]
  - Erosive pustular dermatosis [Not Recovered/Not Resolved]

NARRATIVE: CASE EVENT DATE: 20240801
